FAERS Safety Report 5513515-X (Version None)
Quarter: 2007Q4

REPORT INFORMATION
  Report Type: 
  Country: None (occurrence: None)
  Receive Date: 20071112
  Receipt Date: 20071105
  Transmission Date: 20080405
  Serious: Yes (Death)
  Sender: FDA-Public Use
  Company Number: US-GENENTECH-247858

PATIENT
  Sex: Male
  Weight: 90.249 kg

DRUGS (1)
  1. RITUXIMAB [Suspect]
     Indication: NON-HODGKIN'S LYMPHOMA
     Dosage: UNK, UNK
     Dates: start: 20070212

REACTIONS (1)
  - CEREBROVASCULAR ACCIDENT [None]
